FAERS Safety Report 5859409-1 (Version None)
Quarter: 2008Q3

REPORT INFORMATION
  Report Type: 
  Country: None (occurrence: None)
  Receive Date: 20080826
  Receipt Date: 20080826
  Transmission Date: 20090109
  Serious: No
  Sender: FDA-Public Use
  Company Number: None

PATIENT
  Sex: Female
  Weight: 75.2971 kg

DRUGS (1)
  1. MIRENA [Suspect]
     Indication: CONTRACEPTION
     Dosage: 1 EVERY 5 YEARS INTRA-UTERINE
     Route: 015
     Dates: start: 20080731, end: 20080825

REACTIONS (6)
  - BACK PAIN [None]
  - HEADACHE [None]
  - MENORRHAGIA [None]
  - MOOD SWINGS [None]
  - MUSCLE SPASMS [None]
  - PELVIC PAIN [None]
